FAERS Safety Report 24443487 (Version 2)
Quarter: 2024Q4

REPORT INFORMATION
  Report Type: Spontaneous
  Country: US (occurrence: US)
  Receive Date: 20241016
  Receipt Date: 20241104
  Transmission Date: 20250114
  Serious: Yes (Hospitalization)
  Sender: TEVA
  Company Number: US-TEVA-VS-3253772

PATIENT
  Age: 77 Year
  Sex: Female

DRUGS (3)
  1. BENDAMUSTINE [Suspect]
     Active Substance: BENDAMUSTINE
     Indication: Nodal marginal zone B-cell lymphoma
     Dosage: COMPLETED SIX COURSES OVER SIX MONTHS.
     Route: 065
  2. RITUXIMAB [Suspect]
     Active Substance: RITUXIMAB
     Indication: Nodal marginal zone B-cell lymphoma
     Dosage: COMPLETED SIX COURSES OVER SIX MONTHS.
     Route: 065
  3. RITUXIMAB [Suspect]
     Active Substance: RITUXIMAB
     Indication: Nodal marginal zone B-cell lymphoma
     Dosage: MAINTENANCE THERAPY
     Route: 065

REACTIONS (3)
  - Pulmonary hypertension [Recovered/Resolved]
  - Pleural effusion [Recovered/Resolved]
  - Respiratory failure [Recovered/Resolved]
